FAERS Safety Report 9279173 (Version 1)
Quarter: 2013Q2

REPORT INFORMATION
  Report Type: Spontaneous
  Country: US (occurrence: US)
  Receive Date: 20130508
  Receipt Date: 20130508
  Transmission Date: 20140414
  Serious: Yes (Hospitalization, Other)
  Sender: FDA-Public Use
  Company Number: US-NOVOPROD-376887

PATIENT
  Sex: Female
  Weight: 58.96 kg

DRUGS (2)
  1. NOVOLOG [Suspect]
     Indication: DIABETES MELLITUS
     Dosage: 4 UNITS AS NEEDED
     Route: 058
     Dates: start: 201011
  2. LANTUS [Concomitant]
     Indication: DIABETES MELLITUS
     Dosage: UNKNOWN
     Route: 058

REACTIONS (6)
  - Victim of crime [Recovered/Resolved]
  - Coma [Recovered/Resolved]
  - Small intestinal obstruction [Recovered/Resolved]
  - Incorrect route of drug administration [Recovered/Resolved]
  - Hypoglycaemic unconsciousness [Recovered/Resolved]
  - Fall [Recovered/Resolved]
